FAERS Safety Report 9844109 (Version 1)
Quarter: 2014Q1

REPORT INFORMATION
  Report Type: Report from Study
  Country: DE (occurrence: DE)
  Receive Date: 20140127
  Receipt Date: 20140127
  Transmission Date: 20141002
  Serious: Yes (Hospitalization)
  Sender: FDA-Public Use
  Company Number: DE-ROCHE-1334064

PATIENT
  Age: 36 Year
  Sex: Female
  Weight: 62 kg

DRUGS (5)
  1. PERTUZUMAB [Suspect]
     Indication: BREAST CANCER
     Dosage: DATE OF LAST DOSE PRIOR TO SAE: 23/DEC/2013
     Route: 042
     Dates: start: 20130819
  2. TRASTUZUMAB [Suspect]
     Indication: BREAST CANCER
     Dosage: DATE OF LAST DOSE PRIOR TO SAE: 23/DEC/2013
     Route: 042
     Dates: start: 20130819
  3. NAB-PACLITAXEL [Suspect]
     Indication: BREAST CANCER
     Dosage: DATE OF LAST DOSE PRIOR TO SAE: 04/NOV/2013
     Route: 042
     Dates: start: 20130819
  4. EPIRUBICIN [Suspect]
     Indication: BREAST CANCER
     Dosage: DATE OF LAST DOSE PRIOR TO SAE: 23/DEC/2013
     Route: 042
     Dates: start: 20131111
  5. CYCLOPHOSPHAMIDE [Suspect]
     Indication: BREAST CANCER
     Dosage: DATE OF LAST DOSE PRIOR TO SAE: 23/DEC/2013
     Route: 042
     Dates: start: 20131111

REACTIONS (1)
  - Circulatory collapse [Recovered/Resolved]
